FAERS Safety Report 16272181 (Version 1)
Quarter: 2019Q2

REPORT INFORMATION
  Report Type: Spontaneous
  Country: US (occurrence: US)
  Receive Date: 20190503
  Receipt Date: 20190503
  Transmission Date: 20190711
  Serious: Yes (Hospitalization, Other)
  Sender: FDA-Public Use
  Company Number: US-SHIRE-US201911523

PATIENT
  Sex: Female
  Weight: 67.12 kg

DRUGS (1)
  1. GATTEX [Suspect]
     Active Substance: TEDUGLUTIDE\WATER
     Indication: SHORT-BOWEL SYNDROME
     Dosage: 0.167 MILLILITER, 1X/DAY:QD
     Route: 050
     Dates: start: 20181230

REACTIONS (2)
  - Hospitalisation [Unknown]
  - Drug ineffective [Unknown]
